FAERS Safety Report 14559210 (Version 1)
Quarter: 2018Q1

REPORT INFORMATION
  Report Type: Spontaneous
  Country: US (occurrence: US)
  Receive Date: 20180220
  Receipt Date: 20180220
  Transmission Date: 20180509
  Serious: Yes (Other)
  Sender: FDA-Public Use
  Company Number: None

PATIENT
  Age: 52 Year
  Sex: Female
  Weight: 83 kg

DRUGS (4)
  1. B/A FERAL INH [Concomitant]
  2. TAMIFLU [Suspect]
     Active Substance: OSELTAMIVIR PHOSPHATE
     Indication: INFLUENZA LIKE ILLNESS
     Dosage: DATES OF USE - 09-FEB-2018 X 5 DAYS
     Route: 048
     Dates: start: 20180202
  3. Z-PACK [Concomitant]
     Active Substance: AZITHROMYCIN DIHYDRATE
  4. MEDROL DOSE PACK [Concomitant]
     Active Substance: METHYLPREDNISOLONE

REACTIONS (1)
  - Crying [None]

NARRATIVE: CASE EVENT DATE: 20180215
